FAERS Safety Report 11373066 (Version 1)
Quarter: 2015Q3

REPORT INFORMATION
  Report Type: Spontaneous
  Country: US (occurrence: US)
  Receive Date: 20150811
  Receipt Date: 20150811
  Transmission Date: 20151125
  Serious: No
  Sender: FDA-Public Use
  Company Number: US-ELI_LILLY_AND_COMPANY-US201205000855

PATIENT
  Sex: Male

DRUGS (2)
  1. COUMADIN [Concomitant]
     Active Substance: WARFARIN SODIUM
     Dosage: UNK, SINGLE
  2. CIALIS [Suspect]
     Active Substance: TADALAFIL
     Dosage: UNK, SINGLE
     Dates: start: 2009, end: 2009

REACTIONS (2)
  - Drug ineffective [Unknown]
  - Intentional product misuse [Unknown]

NARRATIVE: CASE EVENT DATE: 2009
